FAERS Safety Report 7337799-0 (Version None)
Quarter: 2011Q1

REPORT INFORMATION
  Report Type: 
  Country: None (occurrence: None)
  Receive Date: 20110308
  Receipt Date: 20110225
  Transmission Date: 20110831
  Serious: No
  Sender: FDA-Public Use
  Company Number: JP-ROCHE-695926

PATIENT
  Sex: Female
  Weight: 50 kg

DRUGS (38)
  1. DIOVAN [Concomitant]
     Route: 048
     Dates: end: 20100214
  2. CALBLOCK [Concomitant]
     Route: 048
     Dates: start: 20091023
  3. LANTUS [Concomitant]
     Dosage: DRUG:LANTUS(INSULIN GLARGINE(GENETICAL RECOMBINATION))
     Route: 058
     Dates: start: 20091018, end: 20100607
  4. PREDNISOLONE [Concomitant]
     Route: 048
     Dates: start: 20091030, end: 20091105
  5. LENDORMIN [Concomitant]
     Route: 048
     Dates: start: 20091203
  6. MAGMITT [Concomitant]
     Route: 048
     Dates: start: 20091002, end: 20100524
  7. KALIMATE [Concomitant]
     Dosage: DOSE FORM: POWDERED MEDICINE
     Route: 048
     Dates: start: 20100215, end: 20100705
  8. PREDNISOLONE [Concomitant]
     Route: 048
     Dates: start: 20091106, end: 20091112
  9. PREDNISOLONE [Concomitant]
     Route: 048
     Dates: start: 20091218, end: 20091224
  10. PREDNISOLONE [Concomitant]
     Route: 048
     Dates: start: 20100302, end: 20100314
  11. SOLU-MEDROL [Concomitant]
     Route: 041
     Dates: start: 20090930, end: 20091003
  12. PREDNISOLONE [Concomitant]
     Route: 048
     Dates: start: 20091023, end: 20091029
  13. PREDNISOLONE [Concomitant]
     Route: 048
     Dates: start: 20091120, end: 20091126
  14. BASEN [Concomitant]
     Route: 048
     Dates: start: 20091003
  15. PREDNISOLONE [Concomitant]
     Dosage: DOSE FORM: PERORAL AGENT
     Route: 048
     Dates: start: 20090915, end: 20091029
  16. PREDNISOLONE [Concomitant]
     Route: 048
     Dates: start: 20091113, end: 20091119
  17. PREDNISOLONE [Concomitant]
     Route: 048
     Dates: start: 20091211, end: 20091217
  18. TAKEPRON [Concomitant]
     Route: 048
     Dates: start: 20090915
  19. AMARYL [Concomitant]
     Route: 048
     Dates: end: 20100301
  20. AMARYL [Concomitant]
     Route: 048
     Dates: start: 20100302, end: 20100705
  21. FLUITRAN [Concomitant]
     Route: 048
     Dates: start: 20091027, end: 20101101
  22. PREDNISOLONE [Concomitant]
     Route: 048
     Dates: start: 20091129, end: 20091203
  23. PREDNISOLONE [Concomitant]
     Route: 048
     Dates: start: 20091225, end: 20091231
  24. PREDNISOLONE [Concomitant]
     Route: 048
     Dates: start: 20100101, end: 20100118
  25. MUCOSTA [Concomitant]
     Dosage: DOSE FORM: PERORAL AGENT
     Route: 048
     Dates: start: 20090915, end: 20100215
  26. ACTONEL [Concomitant]
     Route: 048
     Dates: start: 20091030
  27. LEXOTAN [Concomitant]
     Route: 048
     Dates: start: 20091028, end: 20100301
  28. TOCILIZUMAB [Suspect]
     Indication: CASTLEMAN'S DISEASE
     Route: 041
     Dates: start: 20091221, end: 20100816
  29. TOCILIZUMAB [Suspect]
     Route: 041
     Dates: start: 20100830, end: 20101012
  30. PREDNISOLONE [Concomitant]
     Route: 048
     Dates: start: 20091204, end: 20091210
  31. PREDNISOLONE [Concomitant]
     Route: 048
     Dates: start: 20100119, end: 20100201
  32. PREDNISOLONE [Concomitant]
     Route: 048
     Dates: start: 20100202, end: 20100215
  33. PREDNISOLONE [Concomitant]
     Route: 048
     Dates: start: 20100216, end: 20100301
  34. DIOVAN [Concomitant]
     Route: 048
     Dates: start: 20100215
  35. PREDNISOLONE [Concomitant]
     Route: 048
     Dates: start: 20100315, end: 20100328
  36. ITRIZOLE [Concomitant]
     Dosage: DOSE FORM: PERORAL LIQUID PREPARATION
     Route: 048
     Dates: start: 20090915, end: 20101101
  37. GLYCORAN [Concomitant]
     Route: 048
     Dates: end: 20100301
  38. BENAMBAX [Concomitant]
     Dosage: DOSE FORM: RESPIRATORY TONIC ROUTE: RESPIRATORY INHALATION
     Route: 055
     Dates: start: 20091109

REACTIONS (1)
  - LIVER DISORDER [None]
